FAERS Safety Report 15276052 (Version 1)
Quarter: 2018Q3

REPORT INFORMATION
  Report Type: Spontaneous
  Country: US (occurrence: US)
  Receive Date: 20180728
  Receipt Date: 20180728
  Transmission Date: 20181010
  Serious: Yes (Life-Threatening, Hospitalization, Disabling)
  Sender: FDA-Public Use
  Company Number: None

PATIENT
  Age: 83 Year
  Sex: Female
  Weight: 54 kg

DRUGS (8)
  1. ASTRAGALUS [Concomitant]
  2. GINKGO AND GOTU KOLA [Concomitant]
  3. REISHI [Concomitant]
     Active Substance: REISHI
  4. CHAMOMILE [Concomitant]
     Active Substance: CHAMOMILE
  5. AMLODIPINE [Suspect]
     Active Substance: AMLODIPINE BESYLATE
     Indication: CEREBROVASCULAR ACCIDENT
     Dosage: ?          QUANTITY:1 TABLET(S);?
     Dates: start: 20180129, end: 20180210
  6. HAWTHORN [Concomitant]
     Active Substance: CRATAEGUS LAEVIGATA FRUIT
  7. COQ10 [Concomitant]
     Active Substance: UBIDECARENONE
  8. GINSENG [Concomitant]
     Active Substance: ASIAN GINSENG

REACTIONS (5)
  - Hypotension [None]
  - Therapy cessation [None]
  - Overdose [None]
  - Cardiac failure congestive [None]
  - Influenza like illness [None]

NARRATIVE: CASE EVENT DATE: 20180215
